FAERS Safety Report 5215241-3 (Version None)
Quarter: 2007Q1

REPORT INFORMATION
  Report Type: 
  Country: None (occurrence: None)
  Receive Date: 20070122
  Receipt Date: 20070111
  Transmission Date: 20070707
  Serious: Yes (Other)
  Sender: FDA-Public Use
  Company Number: US-PFIZER INC-2007004111

PATIENT
  Sex: Male

DRUGS (9)
  1. VIAGRA [Suspect]
  2. LIPITOR [Suspect]
     Route: 048
  3. NORVASC [Suspect]
     Route: 048
  4. LANTUS [Concomitant]
  5. GLIPIZIDE [Concomitant]
  6. METFORMIN HCL [Concomitant]
  7. AVALIDE [Concomitant]
  8. TOPROL-XL [Concomitant]
  9. CADUET [Concomitant]

REACTIONS (1)
  - BLINDNESS [None]
